FAERS Safety Report 15665074 (Version 2)
Quarter: 2019Q4

REPORT INFORMATION
  Report Type: Spontaneous
  Country: DE (occurrence: DE)
  Receive Date: 20181128
  Receipt Date: 20191219
  Transmission Date: 20200122
  Serious: Yes (Death, Hospitalization, Other)
  Sender: FDA-Public Use
  Company Number: DE-IBIGEN-2018.05159

PATIENT
  Age: 78 Year
  Sex: Male

DRUGS (21)
  1. PAROXETINE HYDROCHLORIDE. [Suspect]
     Active Substance: PAROXETINE HYDROCHLORIDE
     Indication: AGITATION
     Dosage: 10 MG,QD
     Route: 065
     Dates: start: 20170101
  2. DRONABINOL. [Suspect]
     Active Substance: DRONABINOL
     Dosage: 15 MG, QD
     Route: 065
     Dates: start: 20160101
  3. QUETIAPINE FUMARATE. [Suspect]
     Active Substance: QUETIAPINE FUMARATE
     Dosage: QD
     Route: 048
     Dates: start: 20160101
  4. DEXTROMETHORPHAN HYDROBROMIDE. [Suspect]
     Active Substance: DEXTROMETHORPHAN HYDROBROMIDE
     Dosage: 24 MG QD
     Dates: start: 20170101
  5. FORMOTEROL FUMARATE [Suspect]
     Active Substance: FORMOTEROL FUMARATE
     Indication: PNEUMONIA
     Dosage: 20 MG,QD
     Dates: start: 20160101
  6. TIOTROPIUM BROMIDE [Suspect]
     Active Substance: TIOTROPIUM BROMIDE
     Indication: PNEUMONIA
     Dosage: UNK ()
     Dates: start: 20160101
  7. QUETIAPINE FUMARATE. [Suspect]
     Active Substance: QUETIAPINE FUMARATE
     Indication: AGGRESSION
     Dosage: 100 MG,QD
     Route: 048
     Dates: start: 20170101
  8. DEXTROMETHORPHAN HYDROBROMIDE. [Suspect]
     Active Substance: DEXTROMETHORPHAN HYDROBROMIDE
     Indication: DELIRIUM
     Dosage: 40 MG, DIVIDED INTO 2 DOSAGES
     Route: 065
     Dates: start: 2017
  9. FLUPENTIXOL [Suspect]
     Active Substance: FLUPENTIXOL
     Route: 048
  10. DRONABINOL. [Suspect]
     Active Substance: DRONABINOL
     Indication: DELIRIUM
     Dosage: 2.5 MG,QD
     Dates: start: 20160101
  11. QUETIAPINE FUMARATE. [Suspect]
     Active Substance: QUETIAPINE FUMARATE
     Dosage: 100 MG QD TIME TO ONSET:1 YR
     Route: 048
     Dates: start: 20160101
  12. DONEPEZIL. [Concomitant]
     Active Substance: DONEPEZIL
     Indication: DELIRIUM
     Dosage: UNK ()
  13. CARBAMAZEPINE. [Concomitant]
     Active Substance: CARBAMAZEPINE
     Indication: DEMENTIA WITH LEWY BODIES
     Dosage: UNK UNK,UNK ()
     Route: 065
  14. QUETIAPINE FUMARATE. [Suspect]
     Active Substance: QUETIAPINE FUMARATE
     Dosage: 100 MG QD
     Route: 048
     Dates: start: 20170101
  15. QUETIAPINE FUMARATE. [Suspect]
     Active Substance: QUETIAPINE FUMARATE
     Dosage: 150 MG, QD
     Dates: start: 20160101
  16. AMPICILLIN/SULBACTAM [Suspect]
     Active Substance: AMPICILLIN SODIUM\SULBACTAM SODIUM
     Indication: PNEUMONIA
     Dosage: UNK ()
     Dates: start: 20160101
  17. RIVASTIGMINE. [Concomitant]
     Active Substance: RIVASTIGMINE
     Indication: DELIRIUM
     Dosage: QD
  18. LORAZEPAM. [Suspect]
     Active Substance: LORAZEPAM
     Indication: AGITATION
     Dosage: QD ()
     Dates: start: 20160101
  19. FLUPENTIXOL [Suspect]
     Active Substance: FLUPENTIXOL
     Indication: HANGOVER
     Dosage: UNK UNK,UNK ()
     Route: 048
  20. DRONABINOL. [Suspect]
     Active Substance: DRONABINOL
     Dates: start: 20160101
  21. DEXTROMETHORPHAN HYDROBROMIDE. [Suspect]
     Active Substance: DEXTROMETHORPHAN HYDROBROMIDE
     Dosage: DOSE INCREASED, TWO DIVIDED DOSES
     Route: 065
     Dates: start: 2017

REACTIONS (13)
  - Aggression [Fatal]
  - Paradoxical drug reaction [Fatal]
  - Off label use [Fatal]
  - Agitation [Fatal]
  - Sleep disorder [Fatal]
  - Completed suicide [Fatal]
  - Withdrawal syndrome [Fatal]
  - Rebound effect [Fatal]
  - Delirium [Fatal]
  - Condition aggravated [Fatal]
  - Paranoia [Fatal]
  - Hangover [Fatal]
  - Fatigue [Fatal]

NARRATIVE: CASE EVENT DATE: 201601
